FAERS Safety Report 17969899 (Version 1)
Quarter: 2020Q3

REPORT INFORMATION
  Report Type: Spontaneous
  Country: US (occurrence: US)
  Receive Date: 20200701
  Receipt Date: 20200701
  Transmission Date: 20201103
  Serious: Yes (Hospitalization)
  Sender: FDA-Public Use
  Company Number: US-ASTRAZENECA-2020SE81384

PATIENT
  Age: 79 Year
  Sex: Female
  Weight: 76.7 kg

DRUGS (3)
  1. IBRANCE [Suspect]
     Active Substance: PALBOCICLIB
     Indication: BREAST CANCER METASTATIC
     Dosage: 100 MG AFTER BREAKFAST
     Route: 048
     Dates: start: 201910
  2. FASLODEX [Suspect]
     Active Substance: FULVESTRANT
     Route: 030
     Dates: start: 201910
  3. IBRANCE [Suspect]
     Active Substance: PALBOCICLIB
     Indication: METASTASES TO LUNG
     Dosage: 100 MG AFTER BREAKFAST
     Route: 048
     Dates: start: 201910

REACTIONS (5)
  - Tremor [Recovered/Resolved]
  - Body temperature increased [Recovering/Resolving]
  - Product dose omission issue [Recovered/Resolved]
  - Vocal cord paralysis [Not Recovered/Not Resolved]
  - Chills [Recovering/Resolving]
